FAERS Safety Report 5416033-2 (Version None)
Quarter: 2007Q3

REPORT INFORMATION
  Report Type: 
  Country: None (occurrence: None)
  Receive Date: 20070815
  Receipt Date: 20070809
  Transmission Date: 20080115
  Serious: Yes (Death, Life-Threatening, Hospitalization, Other)
  Sender: FDA-Public Use
  Company Number: JP-ABBOTT-07P-087-0375720-00

PATIENT
  Sex: Female

DRUGS (9)
  1. ESTAZOLAM [Suspect]
     Indication: INSOMNIA
     Route: 048
     Dates: start: 20070610, end: 20070712
  2. BLOPRESS TABLETS [Suspect]
     Indication: HYPERTENSION
     Route: 048
     Dates: start: 20070610, end: 20070712
  3. BLOPRESS TABLETS [Suspect]
     Route: 048
     Dates: end: 20070501
  4. ALLOPURINOL [Suspect]
     Indication: HYPERURICAEMIA
     Route: 048
     Dates: start: 20070610, end: 20070712
  5. FUROSEMIDE [Concomitant]
     Indication: CARDIAC FAILURE
     Route: 048
  6. DIGOXIN [Concomitant]
     Indication: CARDIAC FAILURE
     Route: 048
     Dates: start: 20070502
  7. DOCARPAMINE [Concomitant]
     Indication: CARDIAC FAILURE
     Route: 048
     Dates: start: 20070502
  8. SPIRONOLACTONE [Concomitant]
     Indication: CARDIAC FAILURE
     Route: 048
  9. BROTIZOLAM [Concomitant]
     Indication: INSOMNIA
     Route: 048

REACTIONS (4)
  - AGRANULOCYTOSIS [None]
  - DEHYDRATION [None]
  - GENERAL PHYSICAL HEALTH DETERIORATION [None]
  - PLATELET COUNT DECREASED [None]
